FAERS Safety Report 4763735-7 (Version None)
Quarter: 2005Q3

REPORT INFORMATION
  Report Type: 
  Country: None (occurrence: None)
  Receive Date: 20050908
  Receipt Date: 20050901
  Transmission Date: 20060218
  Serious: Yes (Other)
  Sender: FDA-Public Use
  Company Number: PHEH2005US09781

PATIENT
  Age: 33 Year
  Sex: Female

DRUGS (1)
  1. TRILEPTAL [Suspect]
     Indication: PSYCHOTIC DISORDER

REACTIONS (1)
  - HALLUCINATION, AUDITORY [None]
